FAERS Safety Report 7831957-4 (Version None)
Quarter: 2011Q4

REPORT INFORMATION
  Report Type: 
  Country: None (occurrence: None)
  Receive Date: 20111021
  Receipt Date: 20111012
  Transmission Date: 20120403
  Serious: Yes (Hospitalization, Other)
  Sender: FDA-Public Use
  Company Number: US-RB-032881-11

PATIENT
  Age: 29 Year
  Sex: Male

DRUGS (3)
  1. SUBOXONE [Suspect]
     Indication: DRUG DEPENDENCE
     Route: 060
     Dates: start: 20111010, end: 20111011
  2. DILANTIN [Concomitant]
     Indication: CONVERSION DISORDER
  3. NAPROXEN [Concomitant]
     Indication: PAIN
     Dosage: UNKNOWN

REACTIONS (5)
  - INCOHERENT [None]
  - SOMNOLENCE [None]
  - OFF LABEL USE [None]
  - COLD SWEAT [None]
  - DYSKINESIA [None]
